FAERS Safety Report 4885145-4 (Version None)
Quarter: 2005Q4

REPORT INFORMATION
  Report Type: 
  Country: None (occurrence: None)
  Receive Date: 20051201
  Receipt Date: 20050912
  Transmission Date: 20060501
  Serious: No
  Sender: FDA-Public Use
  Company Number: 2005PV002152

PATIENT
  Age: 38 Year
  Sex: Female
  Weight: 86.1834 kg

DRUGS (7)
  1. BYETTA [Suspect]
     Indication: DIABETES MELLITUS NON-INSULIN-DEPENDENT
     Dosage: 5 MCG; BID; SC
     Route: 058
     Dates: start: 20050811
  2. ACTOS [Concomitant]
  3. METFORMIN [Concomitant]
  4. DIOVAN [Concomitant]
  5. TRICOR [Concomitant]
  6. LOVASTATIN [Concomitant]
  7. ZOLOFT [Concomitant]

REACTIONS (7)
  - DECREASED APPETITE [None]
  - INJECTION SITE BRUISING [None]
  - INJECTION SITE PAIN [None]
  - INJECTION SITE PRURITUS [None]
  - INJECTION SITE SWELLING [None]
  - MEDICATION ERROR [None]
  - WEIGHT DECREASED [None]
